FAERS Safety Report 5063576-X (Version None)
Quarter: 2006Q3

REPORT INFORMATION
  Report Type: 
  Country: None (occurrence: None)
  Receive Date: 20060703
  Receipt Date: 20051111
  Transmission Date: 20061208
  Serious: No
  Sender: FDA-Public Use
  Company Number: 2005S1011068

PATIENT
  Age: 46 Year
  Sex: Male
  Weight: 63.9572 kg

DRUGS (8)
  1. CLOZAPINE [Suspect]
     Indication: PSYCHOTIC DISORDER
     Dosage: 200 MG;HS;ORAL; SEE IMAGE
     Route: 048
     Dates: start: 20051010
  2. CLOZAPINE [Suspect]
     Indication: PSYCHOTIC DISORDER
     Dosage: 200 MG;HS;ORAL; SEE IMAGE
     Route: 048
     Dates: start: 20051026
  3. METOPROLOL TARTRATE [Concomitant]
  4. TRAZODONE HCL [Concomitant]
  5. RISPERIDONE [Concomitant]
  6. BENZATROPINE [Concomitant]
  7. CLONAZEPAM [Concomitant]
  8. OLANZAPINE [Concomitant]

REACTIONS (1)
  - GRANULOCYTOPENIA [None]
